FAERS Safety Report 10006546 (Version 6)
Quarter: 2014Q3

REPORT INFORMATION
  Report Type: Spontaneous
  Country: US (occurrence: US)
  Receive Date: 20140313
  Receipt Date: 20140918
  Transmission Date: 20150326
  Serious: Yes (Other)
  Sender: FDA-Public Use
  Company Number: US-BAYER-2014-035203

PATIENT
  Age: 23 Year
  Sex: Female

DRUGS (1)
  1. MIRENA [Suspect]
     Active Substance: LEVONORGESTREL
     Indication: CONTRACEPTION
     Dosage: 20 MCG/24HR, CONT
     Route: 015
     Dates: start: 20090623, end: 20110405

REACTIONS (10)
  - Drug ineffective [None]
  - Abortion spontaneous [None]
  - Anxiety [None]
  - Pain [None]
  - Depression [None]
  - Emotional distress [None]
  - Pregnancy with contraceptive device [None]
  - Ectopic pregnancy with contraceptive device [None]
  - Device dislocation [None]
  - Injury [None]

NARRATIVE: CASE EVENT DATE: 2011
